FAERS Safety Report 6186616-3 (Version None)
Quarter: 2009Q2

REPORT INFORMATION
  Report Type: 
  Country: None (occurrence: None)
  Receive Date: 20090512
  Receipt Date: 20090304
  Transmission Date: 20091009
  Serious: Yes (Hospitalization)
  Sender: FDA-Public Use
  Company Number: KR-PFIZER INC-2009200944

PATIENT
  Age: 41 Year

DRUGS (16)
  1. CELECOXIB [Suspect]
     Indication: BREAST CANCER
     Dosage: 400 MG, DAILY
     Route: 048
     Dates: start: 20080416
  2. EPIRUBICIN HCL [Suspect]
     Indication: BREAST CANCER
     Dosage: UNK
     Route: 042
     Dates: start: 20080422
  3. *FLUOROURACIL [Suspect]
     Indication: BREAST CANCER
     Dosage: UNK
     Route: 042
     Dates: start: 20080422
  4. CYCLOPHOSPHAMIDE [Suspect]
     Indication: BREAST CANCER
     Dosage: UNK
     Route: 042
     Dates: start: 20080422
  5. DOCETAXEL [Suspect]
     Indication: BREAST CANCER
     Dosage: UNK
     Route: 042
     Dates: start: 20080715
  6. SUCRALFATE [Concomitant]
     Dosage: UNK
     Dates: start: 20080417
  7. DEXAMETHASONE [Concomitant]
     Dosage: UNK
     Dates: start: 20080421, end: 20080423
  8. DEXAMETHASONE [Concomitant]
     Dosage: UNK
     Dates: start: 20080714, end: 20080716
  9. DEXAMETHASONE [Concomitant]
     Dosage: UNK
     Dates: start: 20080804, end: 20080806
  10. DEXAMETHASONE [Concomitant]
     Dosage: UNK
     Dates: start: 20080825, end: 20080827
  11. DEXAMETHASONE [Concomitant]
     Dosage: UNK
     Dates: start: 20080917, end: 20080919
  12. CIPROFLOXACIN [Concomitant]
     Dosage: UNK
     Dates: start: 20080720, end: 20080729
  13. CIPROFLOXACIN [Concomitant]
     Dosage: UNK
     Dates: start: 20080810, end: 20080819
  14. CIPROFLOXACIN [Concomitant]
     Dosage: UNK
     Dates: start: 20080831, end: 20080909
  15. CIPROFLOXACIN [Concomitant]
     Dosage: UNK
     Dates: start: 20080923, end: 20081002
  16. MULTI-VITAMINS [Concomitant]

REACTIONS (2)
  - NEUTROPENIA [None]
  - PHARYNGITIS [None]
